FAERS Safety Report 6693187-1 (Version None)
Quarter: 2010Q2

REPORT INFORMATION
  Report Type: 
  Country: None (occurrence: None)
  Receive Date: 20100422
  Receipt Date: 20100413
  Transmission Date: 20101027
  Serious: Yes (Hospitalization)
  Sender: FDA-Public Use
  Company Number: US-ELI_LILLY_AND_COMPANY-US201004003263

PATIENT
  Age: 54 Year
  Sex: Male

DRUGS (3)
  1. BYETTA [Suspect]
     Indication: TYPE 2 DIABETES MELLITUS
     Route: 058
  2. METFORMIN [Concomitant]
  3. LANTUS [Concomitant]

REACTIONS (3)
  - HYPERLIPIDAEMIA [None]
  - OFF LABEL USE [None]
  - PANCREATITIS [None]
